FAERS Safety Report 4908619-6 (Version None)
Quarter: 2006Q1

REPORT INFORMATION
  Report Type: 
  Country: None (occurrence: None)
  Receive Date: 20060210
  Receipt Date: 20050919
  Transmission Date: 20060701
  Serious: No
  Sender: FDA-Public Use
  Company Number: US-GLAXOSMITHKLINE-A0574860A

PATIENT
  Age: 36 Year
  Sex: Female

DRUGS (2)
  1. PAXIL CR [Suspect]
     Indication: DEPRESSION
     Dosage: 25MG PER DAY
     Route: 048
     Dates: start: 20050917
  2. VITAMIN [Concomitant]

REACTIONS (6)
  - ANXIETY [None]
  - BALANCE DISORDER [None]
  - CRYING [None]
  - EMOTIONAL DISTRESS [None]
  - SOMNOLENCE [None]
  - VERTIGO [None]
